FAERS Safety Report 21283020 (Version 2)
Quarter: 2022Q3

REPORT INFORMATION
  Report Type: Spontaneous
  Country: US (occurrence: None)
  Receive Date: 20220901
  Receipt Date: 20220906
  Transmission Date: 20221027
  Serious: Yes (Death)
  Sender: FDA-Public Use
  Company Number: 2022A301635

PATIENT
  Age: 86 Year
  Sex: Female

DRUGS (3)
  1. ANDEXXA [Suspect]
     Active Substance: ANDEXANET ALFA
     Indication: Procoagulant therapy
     Dosage: 400 MG BOLUS FOLLOWED BY 4 MG/MINUTE INFUSION OVER 120 MIN
     Route: 040
  2. ELIQUIS [Concomitant]
     Active Substance: APIXABAN
     Indication: Atrial fibrillation
     Route: 065
  3. PROTHROMBIN COMPLEX CONCENTRATE (4F-PCC) [Concomitant]
     Dosage: 25 UNITS/KG
     Route: 065

REACTIONS (2)
  - Respiratory failure [Fatal]
  - Drug ineffective [Fatal]

NARRATIVE: CASE EVENT DATE: 20220815
